FAERS Safety Report 10595787 (Version 1)
Quarter: 2014Q4

REPORT INFORMATION
  Report Type: Spontaneous
  Country: IT (occurrence: IT)
  Receive Date: 20141120
  Receipt Date: 20141120
  Transmission Date: 20150529
  Serious: Yes (Hospitalization)
  Sender: FDA-Public Use
  Company Number: IT-PFIZER INC-2014317574

PATIENT
  Age: 90 Year
  Sex: Male

DRUGS (7)
  1. LASIX [Concomitant]
     Active Substance: FUROSEMIDE
     Dosage: UNK
  2. FULCOSUPRA [Concomitant]
     Dosage: UNK
  3. IOPIZE [Concomitant]
     Dosage: UNK
  4. ARILIAR [Concomitant]
     Dosage: UNK
  5. HUMALOG [Concomitant]
     Active Substance: INSULIN LISPRO
     Dosage: UNK
  6. CARDURA [Suspect]
     Active Substance: DOXAZOSIN MESYLATE
     Indication: HYPERTENSION
     Dosage: 4 MG, DAILY
     Route: 048
     Dates: start: 20141101, end: 20141101
  7. TICLOPIDINE [Concomitant]
     Active Substance: TICLOPIDINE
     Dosage: UNK

REACTIONS (3)
  - Anal sphincter atony [Recovered/Resolved]
  - Oedema [Recovered/Resolved]
  - Syncope [Recovered/Resolved]

NARRATIVE: CASE EVENT DATE: 20141101
